FAERS Safety Report 7179270-5 (Version None)
Quarter: 2010Q4

REPORT INFORMATION
  Report Type: 
  Country: None (occurrence: None)
  Receive Date: 20101221
  Receipt Date: 20101210
  Transmission Date: 20110411
  Serious: Yes (Hospitalization)
  Sender: FDA-Public Use
  Company Number: BE-JNJFOC-20101204790

PATIENT
  Sex: Male
  Weight: 99 kg

DRUGS (6)
  1. REMICADE [Suspect]
     Indication: CROHN'S DISEASE
     Route: 042
  2. REMICADE [Suspect]
     Route: 042
  3. REMICADE [Suspect]
     Route: 042
  4. NEBIVOLOL [Concomitant]
     Indication: HYPERTENSION
  5. ATACAND HCT [Concomitant]
     Indication: HYPERTENSION
  6. CIPRAMIL [Concomitant]
     Indication: ANXIETY

REACTIONS (2)
  - INTESTINAL OBSTRUCTION [None]
  - INTESTINAL STENOSIS [None]
